APPROVED DRUG PRODUCT: TERRAMYCIN
Active Ingredient: OXYTETRACYCLINE HYDROCHLORIDE
Strength: EQ 125MG BASE
Dosage Form/Route: CAPSULE;ORAL
Application: N050286 | Product #001
Applicant: PFIZER LABORATORIES DIV PFIZER INC
Approved: Approved Prior to Jan 1, 1982 | RLD: No | RS: No | Type: DISCN